FAERS Safety Report 8885538 (Version 3)
Quarter: 2013Q1

REPORT INFORMATION
  Report Type: Spontaneous
  Country: US (occurrence: US)
  Receive Date: 20121102
  Receipt Date: 20130123
  Transmission Date: 20140127
  Serious: No
  Sender: FDA-Public Use
  Company Number: US-009507513-1210USA011274

PATIENT
  Age: 34 Year
  Sex: Female

DRUGS (3)
  1. SAPHRIS [Suspect]
     Indication: DEPRESSION
     Dosage: 2.5 MG IN THE EVENING
     Route: 060
     Dates: start: 20121019
  2. SAPHRIS [Suspect]
     Indication: ANXIETY
  3. CELEXA [Concomitant]
     Dosage: UNK
     Dates: start: 20121009

REACTIONS (7)
  - Panic attack [Recovering/Resolving]
  - Somnolence [Recovering/Resolving]
  - Fatigue [Recovering/Resolving]
  - Dizziness [Recovering/Resolving]
  - Local swelling [Recovering/Resolving]
  - Underdose [Unknown]
  - Wrong technique in drug usage process [Unknown]
